FAERS Safety Report 9179729 (Version 1)
Quarter: 2012Q4

REPORT INFORMATION
  Report Type: 
  Country: US (occurrence: US)
  Receive Date: 20121029
  Receipt Date: 20121029
  Transmission Date: 20130627
  Serious: No
  Sender: FDA-Public Use
  Company Number: US-MYLANLABS-2012S1006009

PATIENT
  Age: 84 Year
  Sex: Female

DRUGS (4)
  1. WARFARIN [Suspect]
     Indication: HEART RATE IRREGULAR
     Route: 048
  2. COUMADIN [Suspect]
  3. AMLODIPINE [Concomitant]
  4. LEVOXYL [Concomitant]

REACTIONS (1)
  - Dry mouth [Not Recovered/Not Resolved]
